FAERS Safety Report 4340821-7 (Version None)
Quarter: 2004Q2

REPORT INFORMATION
  Report Type: 
  Country: None (occurrence: None)
  Receive Date: 20040419
  Receipt Date: 20030915
  Transmission Date: 20050107
  Serious: No
  Sender: FDA-Public Use
  Company Number: US-GLAXOSMITHKLINE-A0425941A

PATIENT
  Sex: Male

DRUGS (11)
  1. ESKALITH [Suspect]
     Dosage: 900MG PER DAY
     Route: 048
  2. DEPAKOTE [Concomitant]
  3. ZYRTEC [Concomitant]
  4. COLCHICINE [Concomitant]
  5. RITALIN [Concomitant]
  6. TRICOR [Concomitant]
  7. PROVENTIL [Concomitant]
  8. ADVAIR DISKUS 100/50 [Concomitant]
  9. VITAMIN B COMPLEX CAP [Concomitant]
  10. FLAXSEED OIL [Concomitant]
  11. BORON [Concomitant]

REACTIONS (2)
  - DEPRESSION [None]
  - PHARMACEUTICAL PRODUCT COMPLAINT [None]
